FAERS Safety Report 14844619 (Version 2)
Quarter: 2020Q4

REPORT INFORMATION
  Report Type: Spontaneous
  Country: US (occurrence: US)
  Receive Date: 20180503
  Receipt Date: 20201119
  Transmission Date: 20210113
  Serious: Yes (Other)
  Sender: FDA-Public Use
  Company Number: US-GLAXOSMITHKLINE-US2018075840

PATIENT
  Age: 14 Year
  Sex: Male

DRUGS (6)
  1. LAMICTAL XR [Suspect]
     Active Substance: LAMOTRIGINE
     Indication: SEIZURE
     Dosage: 25 MG, QD
     Dates: start: 201712
  2. LAMICTAL XR [Suspect]
     Active Substance: LAMOTRIGINE
     Dosage: 300 MG, QD
  3. ESCITALOPRAM [Concomitant]
     Active Substance: ESCITALOPRAM OXALATE
     Indication: PRODUCT USED FOR UNKNOWN INDICATION
     Dosage: UNK
  4. VYVANSE [Concomitant]
     Active Substance: LISDEXAMFETAMINE DIMESYLATE
     Indication: PRODUCT USED FOR UNKNOWN INDICATION
     Dosage: UNK
  5. LAMICTAL XR [Suspect]
     Active Substance: LAMOTRIGINE
     Dosage: 400 MG, QD
  6. LAMICTAL [Suspect]
     Active Substance: LAMOTRIGINE
     Indication: SEIZURE
     Dosage: 400 MG, QD
     Route: 048
     Dates: start: 201607, end: 201712

REACTIONS (16)
  - Laziness [Unknown]
  - Coordination abnormal [Unknown]
  - Disturbance in attention [Not Recovered/Not Resolved]
  - Behaviour disorder [Recovering/Resolving]
  - Apathy [Unknown]
  - Confusional state [Unknown]
  - Anxiety [Unknown]
  - Psychiatric symptom [Unknown]
  - Fatigue [Unknown]
  - Adverse drug reaction [Unknown]
  - Seizure [Unknown]
  - Abnormal behaviour [Not Recovered/Not Resolved]
  - Mood swings [Not Recovered/Not Resolved]
  - Cognitive disorder [Recovering/Resolving]
  - Emotional disorder [Recovering/Resolving]
  - Tremor [Unknown]

NARRATIVE: CASE EVENT DATE: 201607
